FAERS Safety Report 18574655 (Version 3)
Quarter: 2021Q1

REPORT INFORMATION
  Report Type: Spontaneous
  Country: JP (occurrence: JP)
  Receive Date: 20201203
  Receipt Date: 20210330
  Transmission Date: 20210419
  Serious: Yes (Death, Other)
  Sender: FDA-Public Use
  Company Number: JP-JAZZ-2020-JP-015924

PATIENT
  Age: 5 Year
  Sex: Male
  Weight: 17.6 kg

DRUGS (12)
  1. DEFITELIO [Suspect]
     Active Substance: DEFIBROTIDE SODIUM
     Indication: VENOOCCLUSIVE LIVER DISEASE
     Dosage: 800MG DAILY
     Route: 042
     Dates: start: 20200929, end: 20201028
  2. NEUART [Concomitant]
     Active Substance: ANTITHROMBIN III HUMAN
     Dosage: UNKNOWN DOSE
     Dates: start: 20201013, end: 20201013
  3. ORGARAN [Concomitant]
     Active Substance: DANAPAROID SODIUM
     Indication: PRODUCT USED FOR UNKNOWN INDICATION
     Dosage: UNKNOWN DOSE
  4. ORGARAN [Concomitant]
     Active Substance: DANAPAROID SODIUM
     Dosage: UNKNOWN DOSE
     Dates: start: 20201023, end: 20201023
  5. HEPARIN [Concomitant]
     Active Substance: HEPARIN SODIUM
     Dosage: UNKNOWN DOSE
     Dates: start: 20201023, end: 20201023
  6. NEUART [Concomitant]
     Active Substance: ANTITHROMBIN III HUMAN
     Indication: PRODUCT USED FOR UNKNOWN INDICATION
     Dosage: UNKNOWN DOSE
  7. NEUART [Concomitant]
     Active Substance: ANTITHROMBIN III HUMAN
     Dosage: UNKNOWN DOSE
     Dates: start: 20201026, end: 20201026
  8. ORGARAN [Concomitant]
     Active Substance: DANAPAROID SODIUM
     Dosage: UNKNOWN DOSE
     Dates: start: 20201026, end: 20201026
  9. HEPARIN [Concomitant]
     Active Substance: HEPARIN SODIUM
     Indication: PRODUCT USED FOR UNKNOWN INDICATION
     Dosage: UNKNOWN DOSE
  10. HEPARIN [Concomitant]
     Active Substance: HEPARIN SODIUM
     Dosage: UNKNOWN DOSE
     Dates: start: 20201026, end: 20201026
  11. NEUART [Concomitant]
     Active Substance: ANTITHROMBIN III HUMAN
     Dosage: UNKNOWN DOSE
     Dates: start: 20201003, end: 20201005
  12. NEUART [Concomitant]
     Active Substance: ANTITHROMBIN III HUMAN
     Dosage: UNKNOWN DOSE
     Dates: start: 20201028, end: 20201028

REACTIONS (3)
  - Off label use [Unknown]
  - Pulmonary haemorrhage [Fatal]
  - Sepsis [Fatal]

NARRATIVE: CASE EVENT DATE: 2020
